FAERS Safety Report 8059581 (Version 2)
Quarter: 2013Q2

REPORT INFORMATION
  Report Type: Spontaneous
  Country: US (occurrence: US)
  Receive Date: 20110728
  Receipt Date: 20130514
  Transmission Date: 20140414
  Serious: No
  Sender: FDA-Public Use
  Company Number: US-PFIZER INC-2011169213

PATIENT
  Age: 45 Year
  Sex: Female
  Weight: 69.39 kg

DRUGS (5)
  1. SERTRALINE HCL [Suspect]
     Indication: ANXIETY
     Dosage: UNK
     Route: 048
     Dates: start: 2004, end: 2004
  2. SERTRALINE HCL [Suspect]
     Dosage: 25 MG, 1X/DAY
     Route: 048
     Dates: start: 20110719
  3. ZOLOFT [Suspect]
     Indication: DEPRESSION
     Dosage: 50 MG, 1X/DAY
     Dates: start: 20110719, end: 20110723
  4. ZOLOFT [Suspect]
     Indication: ANXIETY
  5. AMITRIPTYLINE [Concomitant]
     Dosage: UNK

REACTIONS (4)
  - Anxiety [Not Recovered/Not Resolved]
  - Agitation [Not Recovered/Not Resolved]
  - Sleep disorder [Not Recovered/Not Resolved]
  - Insomnia [Recovered/Resolved]
